FAERS Safety Report 6816694-7 (Version None)
Quarter: 2010Q3

REPORT INFORMATION
  Report Type: 
  Country: None (occurrence: None)
  Receive Date: 20100706
  Receipt Date: 20100625
  Transmission Date: 20110219
  Serious: No
  Sender: FDA-Public Use
  Company Number: CA-JNJFOC-20100607925

PATIENT
  Sex: Female

DRUGS (7)
  1. DURAGESIC-100 [Suspect]
     Indication: PAIN
     Route: 062
     Dates: start: 20091201
  2. DURAGESIC-100 [Suspect]
     Route: 062
  3. SYNTHROID [Concomitant]
  4. CELEXA [Concomitant]
  5. VITAMIN D [Concomitant]
  6. COLACE [Concomitant]
  7. OXYCODONE HCL [Concomitant]

REACTIONS (3)
  - BREAKTHROUGH PAIN [None]
  - PRODUCT ADHESION ISSUE [None]
  - WRONG TECHNIQUE IN DRUG USAGE PROCESS [None]
